FAERS Safety Report 4384920-2 (Version None)
Quarter: 2004Q2

REPORT INFORMATION
  Report Type: 
  Country: None (occurrence: None)
  Receive Date: 20040625
  Receipt Date: 20040108
  Transmission Date: 20050107
  Serious: Yes (Death)
  Sender: FDA-Public Use
  Company Number: JP-ROCHE-355465

PATIENT
  Age: 75 Year
  Sex: Female
  Weight: 44 kg

DRUGS (4)
  1. TRETINOIN [Suspect]
     Route: 048
     Dates: start: 20031107, end: 20031116
  2. TRETINOIN [Suspect]
     Route: 048
     Dates: start: 20031119, end: 20031121
  3. DAUNORUBICIN HCL [Suspect]
     Route: 042
     Dates: start: 20031107, end: 20031108
  4. ENOCITABINE [Suspect]
     Route: 042
     Dates: start: 20031107, end: 20031111

REACTIONS (12)
  - DEPRESSED LEVEL OF CONSCIOUSNESS [None]
  - DISSEMINATED INTRAVASCULAR COAGULATION [None]
  - DRUG INEFFECTIVE [None]
  - JAUNDICE [None]
  - LEUKAEMIA RECURRENT [None]
  - LEUKOCYTOSIS [None]
  - LOSS OF CONSCIOUSNESS [None]
  - RENAL FAILURE ACUTE [None]
  - RETINOIC ACID SYNDROME [None]
  - SEPSIS [None]
  - STAPHYLOCOCCAL SEPSIS [None]
  - WHITE BLOOD CELL COUNT INCREASED [None]
